FAERS Safety Report 21222092 (Version 1)
Quarter: 2022Q3

REPORT INFORMATION
  Report Type: Spontaneous
  Country: US (occurrence: US)
  Receive Date: 20220817
  Receipt Date: 20220817
  Transmission Date: 20221026
  Serious: No
  Sender: FDA-Public Use
  Company Number: US-GLAXOSMITHKLINE-USCH2022028550

PATIENT
  Sex: Female

DRUGS (1)
  1. NICORETTE [Suspect]
     Active Substance: NICOTINE
     Indication: Nicotine dependence
     Dosage: MORE THAN 80 PIECES A DAY

REACTIONS (2)
  - Abdominal discomfort [Unknown]
  - Intentional overdose [Unknown]
